FAERS Safety Report 16995915 (Version 1)
Quarter: 2019Q4

REPORT INFORMATION
  Report Type: Spontaneous
  Country: US (occurrence: US)
  Receive Date: 20191105
  Receipt Date: 20191105
  Transmission Date: 20200122
  Serious: Yes (Death)
  Sender: FDA-Public Use
  Company Number: US-CONCORDIA LABORATORIES INC.-2019-CLI-000017

PATIENT
  Age: 70 Year
  Sex: Male

DRUGS (1)
  1. PHOTOFRIN [Suspect]
     Active Substance: PORFIMER SODIUM
     Indication: SQUAMOUS CELL CARCINOMA
     Route: 042

REACTIONS (6)
  - Chest discomfort [Unknown]
  - Shock haemorrhagic [Fatal]
  - Haemoptysis [Fatal]
  - Cardio-respiratory arrest [Fatal]
  - Bronchial fistula [Fatal]
  - Bronchitis [Unknown]
